FAERS Safety Report 20750807 (Version 5)
Quarter: 2022Q3

REPORT INFORMATION
  Report Type: Report from Study
  Country: CA (occurrence: CA)
  Receive Date: 20220426
  Receipt Date: 20220916
  Transmission Date: 20221027
  Serious: Yes (Death, Hospitalization, Other)
  Sender: FDA-Public Use
  Company Number: CA-OTSUKA-2022_010228

PATIENT
  Age: 78 Year
  Sex: Female

DRUGS (1)
  1. CEDAZURIDINE\DECITABINE [Suspect]
     Active Substance: CEDAZURIDINE\DECITABINE
     Indication: Myelodysplastic syndrome
     Dosage: UNK
     Route: 065
     Dates: start: 20220131

REACTIONS (21)
  - Death [Fatal]
  - Abdominal abscess [Recovered/Resolved]
  - Thrombosis [Unknown]
  - Full blood count abnormal [Not Recovered/Not Resolved]
  - Pericardial effusion [Unknown]
  - Platelet count decreased [Unknown]
  - Gingival abscess [Recovered/Resolved]
  - Mastication disorder [Unknown]
  - Pruritus [Recovered/Resolved]
  - Urticaria [Unknown]
  - Depression [Unknown]
  - Pain [Unknown]
  - Abdominal pain upper [Recovered/Resolved]
  - Rash macular [Recovered/Resolved]
  - Constipation [Unknown]
  - Arthralgia [Unknown]
  - Gastrointestinal viral infection [Unknown]
  - Oral herpes [Unknown]
  - Stomatitis [Recovered/Resolved]
  - Viral infection [Unknown]
  - Therapy interrupted [Unknown]

NARRATIVE: CASE EVENT DATE: 20220227
